FAERS Safety Report 8395572-9 (Version None)
Quarter: 2012Q2

REPORT INFORMATION
  Report Type: 
  Country: None (occurrence: None)
  Receive Date: 20120530
  Receipt Date: 20110909
  Transmission Date: 20120825
  Serious: No
  Sender: FDA-Public Use
  Company Number: US-GLAXOSMITHKLINE-A0944064A

PATIENT
  Age: 59 Year
  Sex: Female

DRUGS (6)
  1. AMBIEN [Concomitant]
  2. VENTOLIN [Suspect]
     Indication: BRONCHITIS
     Dosage: 1PUFF AS REQUIRED
     Route: 055
     Dates: start: 20070901
  3. MULTI-VITAMIN [Concomitant]
  4. CHOLESTEROL REDUCING AGENT [Concomitant]
     Indication: BLOOD CHOLESTEROL INCREASED
  5. HYDROCHLOROTHIAZIDE [Concomitant]
  6. TRAMADOL HCL [Concomitant]

REACTIONS (4)
  - COUGH [None]
  - DYSPNOEA [None]
  - PRODUCT QUALITY ISSUE [None]
  - RESPIRATORY TRACT CONGESTION [None]
